FAERS Safety Report 6068271-6 (Version None)
Quarter: 2009Q1

REPORT INFORMATION
  Report Type: 
  Country: None (occurrence: None)
  Receive Date: 20090206
  Receipt Date: 20090127
  Transmission Date: 20090719
  Serious: No
  Sender: FDA-Public Use
  Company Number: PHEH2008US10922

PATIENT
  Sex: Female

DRUGS (1)
  1. RECLAST [Suspect]
     Indication: OSTEOPOROSIS
     Dosage: UNK, ONCE/SINGLE
     Dates: start: 20081205, end: 20081205

REACTIONS (2)
  - PAIN IN JAW [None]
  - TRISMUS [None]
